FAERS Safety Report 10251591 (Version 1)
Quarter: 2014Q2

REPORT INFORMATION
  Report Type: Spontaneous
  Country: US (occurrence: US)
  Receive Date: 20140623
  Receipt Date: 20140623
  Transmission Date: 20141212
  Serious: No
  Sender: FDA-Public Use
  Company Number: US-009507513-1406USA006708

PATIENT
  Sex: 0

DRUGS (1)
  1. PEGINTRON [Suspect]
     Dosage: ONE DOSE PER WEEK, OVER A PERIOD OF THREE WEEKS

REACTIONS (2)
  - Incorrect product storage [Unknown]
  - No adverse event [Unknown]
